FAERS Safety Report 13815243 (Version 1)
Quarter: 2017Q3

REPORT INFORMATION
  Report Type: Spontaneous
  Country: US (occurrence: US)
  Receive Date: 20170729
  Receipt Date: 20170729
  Transmission Date: 20171127
  Serious: Yes (Other)
  Sender: FDA-Public Use
  Company Number: None

PATIENT
  Age: 63 Year
  Sex: Female
  Weight: 69.75 kg

DRUGS (9)
  1. VAGIFEM [Concomitant]
     Active Substance: ESTRADIOL
  2. CALCIUM [Concomitant]
     Active Substance: CALCIUM
  3. FISH OIL [Concomitant]
     Active Substance: FISH OIL
  4. PROLIA [Suspect]
     Active Substance: DENOSUMAB
     Indication: OSTEOPOROSIS
     Dosage: 1 INJECTION; EVERY 6 MONTHS; SUBCUTANEOUS?
     Route: 058
  5. FLONASE [Concomitant]
     Active Substance: FLUTICASONE PROPIONATE
  6. MULTIVITAMIN [Concomitant]
     Active Substance: VITAMINS
  7. FOLIC ACID. [Concomitant]
     Active Substance: FOLIC ACID
  8. URSO [Concomitant]
     Active Substance: URSODIOL
  9. MILK THISTLE [Concomitant]
     Active Substance: MILK THISTLE

REACTIONS (2)
  - Pollakiuria [None]
  - Micturition urgency [None]

NARRATIVE: CASE EVENT DATE: 20170718
